FAERS Safety Report 7609046-3 (Version None)
Quarter: 2011Q3

REPORT INFORMATION
  Report Type: 
  Country: None (occurrence: None)
  Receive Date: 20110714
  Receipt Date: 20110708
  Transmission Date: 20111222
  Serious: Yes (Hospitalization)
  Sender: FDA-Public Use
  Company Number: GB-ROCHE-789264

PATIENT
  Sex: Female
  Weight: 64 kg

DRUGS (2)
  1. DOCETAXEL [Suspect]
     Indication: BREAST CANCER
     Dosage: CYCLE 1
     Route: 065
     Dates: start: 20110622
  2. BEVACIZUMAB [Suspect]
     Indication: BREAST CANCER
     Dosage: CYCLE 1
     Route: 065
     Dates: start: 20110622

REACTIONS (1)
  - PYREXIA [None]
